FAERS Safety Report 19523780 (Version 2)
Quarter: 2021Q4

REPORT INFORMATION
  Report Type: Report from Study
  Country: US (occurrence: US)
  Receive Date: 20210712
  Receipt Date: 20211006
  Transmission Date: 20220303
  Serious: No
  Sender: FDA-Public Use
  Company Number: NVSC2021US147998

PATIENT
  Sex: Female

DRUGS (1)
  1. ENTRESTO [Suspect]
     Active Substance: SACUBITRIL\VALSARTAN
     Indication: Product used for unknown indication
     Dosage: 200 MG, BID (97/103 MG)
     Route: 048

REACTIONS (4)
  - Amnesia [Unknown]
  - Fatigue [Unknown]
  - Blood pressure abnormal [Unknown]
  - Hypotension [Unknown]
